FAERS Safety Report 9700312 (Version 1)
Quarter: 2013Q4

REPORT INFORMATION
  Report Type: Spontaneous
  Country: CN (occurrence: CN)
  Receive Date: 20131121
  Receipt Date: 20131121
  Transmission Date: 20140711
  Serious: Yes (Hospitalization)
  Sender: FDA-Public Use
  Company Number: CN-BAYER-2013-139158

PATIENT
  Age: 67 Year
  Sex: Female

DRUGS (1)
  1. AVELOX [Suspect]
     Indication: ANTIBIOTIC THERAPY
     Dosage: 400 MG, QD
     Route: 041
     Dates: start: 20111112, end: 20111115

REACTIONS (1)
  - Bone marrow failure [Recovering/Resolving]
